FAERS Safety Report 7224541-7 (Version None)
Quarter: 2011Q1

REPORT INFORMATION
  Report Type: 
  Country: None (occurrence: None)
  Receive Date: 20110103
  Receipt Date: 20101216
  Transmission Date: 20110831
  Serious: Yes (Hospitalization)
  Sender: FDA-Public Use
  Company Number: UTC-003397

PATIENT
  Age: 40 Year
  Sex: Female
  Weight: 145.5 kg

DRUGS (7)
  1. TRACLEER [Concomitant]
  2. LOVENOX [Concomitant]
  3. REMODULIN [Suspect]
     Indication: PULMONARY HYPERTENSION
     Dosage: 28.8 UG/KG (0.02 UG/KG,1 IN 1 MIN), SUBCUTANEOUS
     Route: 058
     Dates: start: 20100604, end: 20101129
  4. REMODULIN [Suspect]
     Indication: BUDD-CHIARI SYNDROME
     Dosage: 28.8 UG/KG (0.02 UG/KG,1 IN 1 MIN), SUBCUTANEOUS
     Route: 058
     Dates: start: 20100604, end: 20101129
  5. REVATIO [Concomitant]
  6. DIURETXCS (DIURETICS) [Concomitant]
  7. DILAUDID [Suspect]

REACTIONS (5)
  - NAUSEA [None]
  - HEADACHE [None]
  - RENAL FAILURE ACUTE [None]
  - DEHYDRATION [None]
  - VOMITING [None]
